FAERS Safety Report 8599150-8 (Version None)
Quarter: 2012Q3

REPORT INFORMATION
  Report Type: 
  Country: None (occurrence: None)
  Receive Date: 20120816
  Receipt Date: 20120807
  Transmission Date: 20120928
  Serious: Yes (Hospitalization, Other)
  Sender: FDA-Public Use
  Company Number: US-ABBOTT-12P-163-0966402-00

PATIENT
  Sex: Female

DRUGS (5)
  1. ZOFRAN [Concomitant]
     Indication: NAUSEA
     Dosage: AS NEEDED, UP TO THREE TIMES DAILY
     Dates: start: 20120329
  2. ENTOCORT EC [Concomitant]
     Indication: PRODUCT USED FOR UNKNOWN INDICATION
     Dosage: IN THE MORNING
     Dates: start: 20120329
  3. HUMIRA [Suspect]
     Indication: CROHN'S DISEASE
     Dates: start: 20120411, end: 20120727
  4. DEXILANT [Concomitant]
     Indication: GASTROOESOPHAGEAL REFLUX DISEASE
     Dosage: 60 MG DAILY
     Dates: start: 20120301
  5. BIRTH CONTROL PILLS [Concomitant]
     Indication: PRODUCT USED FOR UNKNOWN INDICATION

REACTIONS (3)
  - CHOLECYSTECTOMY [None]
  - CHOLELITHIASIS OBSTRUCTIVE [None]
  - DEPRESSION [None]
